FAERS Safety Report 6787254-1 (Version None)
Quarter: 2010Q2

REPORT INFORMATION
  Report Type: 
  Country: None (occurrence: None)
  Receive Date: 20100621
  Receipt Date: 20100607
  Transmission Date: 20101027
  Serious: Yes (Disabling)
  Sender: FDA-Public Use
  Company Number: 2009-1484

PATIENT
  Age: 56 Year
  Sex: Male

DRUGS (14)
  1. DYSPORT [Suspect]
     Indication: MUSCLE SPASTICITY
     Dosage: SEE IMAGE
     Route: 030
     Dates: start: 20090211, end: 20090211
  2. ALDACTONE [Concomitant]
  3. AMLODIPINE BESYLATE [Concomitant]
  4. VALSARTAN [Concomitant]
  5. MYOLASTAN (TETRAZEPAM) [Concomitant]
  6. KARDEGIC (ACETYLSALICYLATE LYSINE) [Concomitant]
  7. LIORESAL [Concomitant]
  8. MEPRONIZINE (MEPRONIZINE) [Concomitant]
  9. FENOFIBRATE [Concomitant]
  10. ESCITALOPRAM [Concomitant]
  11. CLONAZEPAM [Concomitant]
  12. CARBOSYLANE (CARBOSYLANE) [Concomitant]
  13. SULFARLEM (ANETHOLE TRITHIONE) [Concomitant]
  14. BISOPROLOL FUMARATE [Concomitant]

REACTIONS (15)
  - ACTIVITIES OF DAILY LIVING IMPAIRED [None]
  - CONDITION AGGRAVATED [None]
  - DEPRESSED MOOD [None]
  - DIPLOPIA [None]
  - DISTURBANCE IN ATTENTION [None]
  - DRY EYE [None]
  - DYSKINESIA [None]
  - DYSPHAGIA [None]
  - EYE PAIN [None]
  - HOT FLUSH [None]
  - HYPOTONIA [None]
  - INJECTION SITE PAIN [None]
  - MYOCLONUS [None]
  - PAIN IN EXTREMITY [None]
  - READING DISORDER [None]
